FAERS Safety Report 6641690-2 (Version None)
Quarter: 2010Q1

REPORT INFORMATION
  Report Type: 
  Country: None (occurrence: None)
  Receive Date: 20100319
  Receipt Date: 20100312
  Transmission Date: 20100710
  Serious: Yes (Death, Life-Threatening, Hospitalization)
  Sender: FDA-Public Use
  Company Number: JP-ABBOTT-10P-087-0626554-00

PATIENT
  Sex: Female
  Weight: 48 kg

DRUGS (40)
  1. CLARITH [Suspect]
     Indication: URINARY TRACT INFECTION
     Route: 048
     Dates: start: 20091120, end: 20091127
  2. YOKUKAN-SAN [Suspect]
     Indication: SCHIZOPHRENIA
     Route: 048
     Dates: start: 20091106, end: 20091109
  3. MAOBUSHISAISHINTO (HERBAL MEDICINE) [Suspect]
     Indication: NASOPHARYNGITIS
     Route: 048
     Dates: start: 20091023, end: 20091105
  4. MASHININGAN (HERBAL MEDICINE) [Suspect]
     Indication: CONSTIPATION
     Route: 048
     Dates: start: 20091110, end: 20091119
  5. MASHININGAN (HERBAL MEDICINE) [Suspect]
     Route: 048
     Dates: start: 20091120, end: 20091130
  6. PIPERACILLIN SODIUM [Suspect]
     Indication: PYELONEPHRITIS
     Dates: start: 20091112, end: 20091119
  7. PIPERACILLIN SODIUM [Suspect]
  8. AMLODIPINE BESYLATE [Concomitant]
     Indication: DRUG USE FOR UNKNOWN INDICATION
     Route: 048
     Dates: end: 20091130
  9. SPIRONOLACTONE [Concomitant]
     Indication: DRUG USE FOR UNKNOWN INDICATION
     Dosage: 2T DAILY
     Route: 048
     Dates: end: 20091130
  10. HALOPERIDOL [Concomitant]
     Indication: DRUG USE FOR UNKNOWN INDICATION
     Dosage: 3MG DAILY
     Route: 048
     Dates: end: 20091130
  11. BIPERIDEN HYDROCHLORIDE [Concomitant]
     Indication: DRUG USE FOR UNKNOWN INDICATION
     Dosage: 1.5MG DAILY
     Route: 048
     Dates: end: 20091130
  12. AMANTADINE HYDROCHLORIDE [Concomitant]
     Indication: DRUG USE FOR UNKNOWN INDICATION
     Dosage: 3T DAILY
     Route: 048
     Dates: end: 20091130
  13. MECOBALAMIN [Concomitant]
     Indication: DRUG USE FOR UNKNOWN INDICATION
     Dosage: 3T DAILY
     Route: 048
     Dates: end: 20091130
  14. TOCOPHEROL ACETATE [Concomitant]
     Indication: DRUG USE FOR UNKNOWN INDICATION
     Dosage: 3T DAILY
     Route: 048
     Dates: end: 20091130
  15. SODIUM PICOSULFATE HYDRATE [Concomitant]
     Indication: DRUG USE FOR UNKNOWN INDICATION
     Dosage: 2T DAILY
     Route: 048
     Dates: end: 20091130
  16. SENNA EXTRACT [Concomitant]
     Indication: DRUG USE FOR UNKNOWN INDICATION
     Dosage: 2T DAILY
     Route: 048
     Dates: end: 20091130
  17. MAGNESIUM OXIDE [Concomitant]
     Indication: DRUG USE FOR UNKNOWN INDICATION
     Dosage: 0.6 GRAM DAILY
     Route: 048
     Dates: end: 20091130
  18. LEVOTHYROXINE SODIUM HYDRATE [Concomitant]
     Indication: DRUG USE FOR UNKNOWN INDICATION
     Dosage: 2T DAILY
     Route: 048
     Dates: end: 20091130
  19. ALFACALCIDOL [Concomitant]
     Indication: DRUG USE FOR UNKNOWN INDICATION
     Route: 048
     Dates: end: 20091130
  20. MAGNESIUM OXIDE [Concomitant]
     Dosage: 3T DAILY
     Route: 048
     Dates: end: 20091130
  21. MAGNESIUM OXIDE [Concomitant]
     Route: 048
     Dates: end: 20091130
  22. ASPARA-CA [Concomitant]
     Indication: DRUG USE FOR UNKNOWN INDICATION
     Route: 048
     Dates: end: 20091130
  23. CORPADEL [Concomitant]
     Indication: DRUG USE FOR UNKNOWN INDICATION
     Dosage: 2T DAILY
     Route: 048
     Dates: end: 20091130
  24. LEVODOPA/CARBIODOPA HYDRATE [Concomitant]
     Indication: DRUG USE FOR UNKNOWN INDICATION
     Dosage: 2T DAILY
     Route: 048
     Dates: end: 20091130
  25. LEVODOPA/CARBIODOPA HYDRATE [Concomitant]
  26. NAUZELIN [Concomitant]
     Indication: DRUG USE FOR UNKNOWN INDICATION
     Dosage: 2T DAILY
     Route: 048
     Dates: end: 20091130
  27. SYMMETREL [Concomitant]
     Indication: DRUG USE FOR UNKNOWN INDICATION
     Dosage: 2T DAILY
     Route: 048
     Dates: end: 20091130
  28. DEPAS [Concomitant]
     Indication: DRUG USE FOR UNKNOWN INDICATION
     Route: 048
     Dates: end: 20091108
  29. SEROQUEL [Concomitant]
     Indication: DRUG USE FOR UNKNOWN INDICATION
     Dosage: 5 MG-} 20 MG-} 40 MG
     Route: 048
     Dates: start: 20091105, end: 20091116
  30. ZOLPIDEM TARTRATE [Concomitant]
     Indication: DRUG USE FOR UNKNOWN INDICATION
     Route: 048
     Dates: start: 20091105, end: 20091116
  31. SELENICA-R [Concomitant]
     Indication: DRUG USE FOR UNKNOWN INDICATION
     Route: 048
     Dates: start: 20091110, end: 20091112
  32. CRAVIT [Concomitant]
     Indication: DRUG USE FOR UNKNOWN INDICATION
     Route: 048
     Dates: start: 20091111, end: 20091111
  33. BESACOLIN [Concomitant]
     Indication: DYSURIA
     Route: 048
     Dates: start: 20091117, end: 20091201
  34. UBRETID [Concomitant]
     Indication: DYSURIA
     Route: 048
     Dates: start: 20091117, end: 20091201
  35. FOSAMAC [Concomitant]
     Indication: OSTEOPOROSIS
     Dates: end: 20091121
  36. LOXONIN [Concomitant]
     Indication: BACK PAIN
     Route: 048
     Dates: start: 20091025, end: 20091031
  37. LOXONIN [Concomitant]
     Route: 048
     Dates: start: 20091101, end: 20091103
  38. MUCOSTA [Concomitant]
     Indication: BACK PAIN
     Route: 048
     Dates: start: 20091025, end: 20091031
  39. MUCOSTA [Concomitant]
     Route: 048
     Dates: start: 20091101, end: 20091103
  40. MAGNESIUM OXIDE [Concomitant]
     Dosage: 3T DAILY
     Route: 048
     Dates: end: 20091130

REACTIONS (1)
  - INTERSTITIAL LUNG DISEASE [None]
